FAERS Safety Report 18946635 (Version 1)
Quarter: 2021Q1

REPORT INFORMATION
  Report Type: Spontaneous
  Country: US (occurrence: US)
  Receive Date: 20210226
  Receipt Date: 20210226
  Transmission Date: 20210420
  Serious: No
  Sender: FDA-Public Use
  Company Number: US-ROCHE-2764573

PATIENT
  Sex: Female

DRUGS (2)
  1. RITUXIMAB. [Suspect]
     Active Substance: RITUXIMAB
     Indication: SEROLOGY POSITIVE
     Route: 065
  2. SATRALIZUMAB. [Suspect]
     Active Substance: SATRALIZUMAB
     Indication: SEROLOGY POSITIVE
     Route: 065

REACTIONS (3)
  - Intentional product use issue [Unknown]
  - Fatigue [Unknown]
  - Off label use [Unknown]
